FAERS Safety Report 9805329 (Version 1)
Quarter: 2014Q1

REPORT INFORMATION
  Report Type: Spontaneous
  Country: US (occurrence: None)
  Receive Date: 20140108
  Receipt Date: 20140108
  Transmission Date: 20141002
  Serious: Yes (Other)
  Sender: FDA-Public Use
  Company Number: None

PATIENT
  Age: 61 Year
  Sex: Female
  Weight: 72.12 kg

DRUGS (8)
  1. LEVOTHYROXIN [Suspect]
     Indication: HYPOTHYROIDISM
     Dosage: BY MOUTH IT
  2. LEVOTHYROXIN [Suspect]
     Indication: GOITRE
     Dosage: BY MOUTH IT
  3. LEVOTHYROXIN [Suspect]
     Indication: THYROIDECTOMY
     Dosage: BY MOUTH IT
  4. LEVOTHYROXIN [Concomitant]
  5. PRAVASTATIN [Concomitant]
  6. IT [Concomitant]
  7. CALCIUM [Concomitant]
  8. VIT D [Concomitant]

REACTIONS (1)
  - Alopecia [None]
